FAERS Safety Report 4867797-8 (Version None)
Quarter: 2005Q4

REPORT INFORMATION
  Report Type: 
  Country: None (occurrence: None)
  Receive Date: 20051223
  Receipt Date: 20051223
  Transmission Date: 20060501
  Serious: Yes (Hospitalization, Other)
  Sender: FDA-Public Use
  Company Number: None

PATIENT
  Sex: Male
  Weight: 87.7 kg

DRUGS (9)
  1. TEMOZOLOMIDE [Suspect]
     Indication: ASTROCYTOMA
     Dosage: SEE IMAGE
     Route: 048
     Dates: start: 20051011, end: 20051121
  2. TEMOZOLOMIDE [Suspect]
     Indication: ASTROCYTOMA
     Dosage: SEE IMAGE
     Route: 048
     Dates: start: 20051011
  3. TEMOZOLOMIDE [Suspect]
     Dosage: SEE IMAGE
     Route: 048
     Dates: start: 20051011, end: 20051121
  4. COTRIM [Concomitant]
  5. COUMADIN [Concomitant]
  6. DECADRON [Concomitant]
  7. NAPROSYN [Concomitant]
  8. TYLENOL W/ CODEINE NO. 3 [Concomitant]
  9. VALSARTAN [Concomitant]

REACTIONS (3)
  - ABNORMAL BEHAVIOUR [None]
  - ASTHENIA [None]
  - FALL [None]
